FAERS Safety Report 21720564 (Version 4)
Quarter: 2022Q4

REPORT INFORMATION
  Report Type: Report from Study
  Country: US (occurrence: US)
  Receive Date: 20221213
  Receipt Date: 20221226
  Transmission Date: 20230113
  Serious: No
  Sender: FDA-Public Use
  Company Number: US-002147023-NVSC2022US288232

PATIENT
  Sex: Female

DRUGS (1)
  1. COSENTYX [Suspect]
     Active Substance: SECUKINUMAB
     Indication: Product used for unknown indication
     Dosage: 150 MG
     Route: 065

REACTIONS (7)
  - Abdominal discomfort [Unknown]
  - Asthenia [Unknown]
  - Fatigue [Unknown]
  - Tremor [Unknown]
  - Diarrhoea [Unknown]
  - Urticaria [Unknown]
  - Drug hypersensitivity [Unknown]
